FAERS Safety Report 18349971 (Version 2)
Quarter: 2020Q4

REPORT INFORMATION
  Report Type: Not Available
  Country: US (occurrence: US)
  Receive Date: 20201006
  Receipt Date: 20201104
  Transmission Date: 20210114
  Serious: No
  Sender: FDA-Public Use
  Company Number: US-NEUROCRINE BIOSCIENCES INC.-2020NBI03505

PATIENT
  Age: 68 Year
  Sex: Female

DRUGS (3)
  1. DEPAKOTE ER [Concomitant]
     Active Substance: DIVALPROEX SODIUM
     Route: 048
     Dates: start: 20181203
  2. INGREZZA [Suspect]
     Active Substance: VALBENAZINE
     Indication: TARDIVE DYSKINESIA
     Route: 048
     Dates: start: 20181026
  3. VIIBRYD [Concomitant]
     Active Substance: VILAZODONE HYDROCHLORIDE
     Route: 048
     Dates: start: 20191106

REACTIONS (4)
  - Malaise [Recovering/Resolving]
  - General physical health deterioration [Recovering/Resolving]
  - Hypophagia [Recovered/Resolved]
  - Cognitive disorder [Recovering/Resolving]
